FAERS Safety Report 9169842 (Version 1)
Quarter: 2013Q1

REPORT INFORMATION
  Report Type: Spontaneous
  Country: BR (occurrence: BR)
  Receive Date: 20130319
  Receipt Date: 20130319
  Transmission Date: 20140127
  Serious: Yes (Other)
  Sender: FDA-Public Use
  Company Number: BR-AMGEN-BRASP2013018294

PATIENT
  Age: 53 Year
  Sex: Male
  Weight: 85.98 kg

DRUGS (4)
  1. ENBREL [Suspect]
     Indication: ANKYLOSING SPONDYLITIS
     Dosage: 25 MG, EVERY 72 HOURS
     Route: 058
     Dates: start: 20120920, end: 201301
  2. ENBREL [Suspect]
     Dosage: 50 MG, ONCE WEEKLY
     Route: 058
     Dates: start: 201301, end: 201301
  3. TANDRILAX [Concomitant]
     Indication: ANKYLOSING SPONDYLITIS
     Dosage: UNK
     Dates: start: 2010
  4. DICLOFENAC SODIUM [Concomitant]
     Indication: ANKYLOSING SPONDYLITIS
     Dosage: UNK
     Dates: start: 2008

REACTIONS (9)
  - Dengue fever [Unknown]
  - Dizziness [Recovered/Resolved]
  - Vision blurred [Unknown]
  - Visual impairment [Unknown]
  - Blood urine present [Recovered/Resolved]
  - Pyrexia [Unknown]
  - Bone pain [Unknown]
  - Pain in extremity [Unknown]
  - Eye pain [Unknown]
